FAERS Safety Report 16923707 (Version 3)
Quarter: 2022Q3

REPORT INFORMATION
  Report Type: Spontaneous
  Country: US (occurrence: US)
  Receive Date: 20191016
  Receipt Date: 20220809
  Transmission Date: 20221027
  Serious: Yes (Hospitalization, Other)
  Sender: FDA-Public Use
  Company Number: US-ACCORD-157736

PATIENT
  Age: 51 Year
  Sex: Male

DRUGS (3)
  1. CARBOPLATIN [Suspect]
     Active Substance: CARBOPLATIN
     Indication: Oesophageal adenocarcinoma
  2. PACLITAXEL [Concomitant]
     Active Substance: PACLITAXEL
     Indication: Oesophageal adenocarcinoma
  3. DEXAMETHASONE [Concomitant]
     Active Substance: DEXAMETHASONE
     Indication: Oesophageal adenocarcinoma

REACTIONS (2)
  - Kounis syndrome [Recovered/Resolved]
  - Off label use [Unknown]
